FAERS Safety Report 25914543 (Version 1)
Quarter: 2025Q4

REPORT INFORMATION
  Report Type: Spontaneous
  Country: EU (occurrence: EU)
  Receive Date: 20251013
  Receipt Date: 20251013
  Transmission Date: 20260117
  Serious: Yes (Hospitalization)
  Sender: ELI LILLY AND COMPANY
  Company Number: None

PATIENT
  Age: 82 Year
  Sex: Female
  Weight: 52 kg

DRUGS (5)
  1. ABEMACICLIB [Suspect]
     Active Substance: ABEMACICLIB
     Indication: Breast cancer metastatic
     Dosage: 100 MG, BID
     Route: 048
     Dates: start: 202504, end: 20250910
  2. EXEMESTANE [Concomitant]
     Active Substance: EXEMESTANE
     Indication: Product used for unknown indication
  3. INNOVAIR [Concomitant]
     Active Substance: BECLOMETHASONE DIPROPIONATE\FORMOTEROL
     Indication: Product used for unknown indication
  4. KARDEGIC [Concomitant]
     Active Substance: ASPIRIN DL-LYSINE
     Indication: Product used for unknown indication
  5. AMLODIPINE [Concomitant]
     Active Substance: AMLODIPINE BESYLATE
     Indication: Product used for unknown indication

REACTIONS (2)
  - Extremity necrosis [Recovering/Resolving]
  - Peripheral ischaemia [Recovered/Resolved]

NARRATIVE: CASE EVENT DATE: 20250501
